FAERS Safety Report 16114607 (Version 1)
Quarter: 2019Q1

REPORT INFORMATION
  Report Type: Report from Study
  Country: CA (occurrence: CA)
  Receive Date: 20190325
  Receipt Date: 20190325
  Transmission Date: 20190418
  Serious: Yes (Other)
  Sender: FDA-Public Use
  Company Number: CA-JNJFOC-20190328335

PATIENT
  Age: 44 Year
  Sex: Male
  Weight: 88 kg

DRUGS (1)
  1. REMICADE [Suspect]
     Active Substance: INFLIXIMAB
     Indication: COLITIS ULCERATIVE
     Dosage: STRENGTH = 100 MG
     Route: 042
     Dates: start: 20101124

REACTIONS (4)
  - Limb injury [Recovering/Resolving]
  - Pharyngitis streptococcal [Recovered/Resolved]
  - Carpal tunnel syndrome [Unknown]
  - Stem cell transplant [Unknown]

NARRATIVE: CASE EVENT DATE: 20190201
